FAERS Safety Report 16839863 (Version 1)
Quarter: 2019Q4

REPORT INFORMATION
  Report Type: Spontaneous
  Country: US (occurrence: US)
  Receive Date: 20190922
  Receipt Date: 20190922
  Transmission Date: 20200122
  Serious: Yes (Hospitalization)
  Sender: FDA-Public Use
  Company Number: None

PATIENT
  Age: 57 Year
  Sex: Female
  Weight: 78.3 kg

DRUGS (10)
  1. NATPARA (PARATHYROID HORMONE) [Suspect]
     Active Substance: PARATHYROID HORMONE
     Indication: HYPOPARATHYROIDISM
  2. AMILORIDE [Concomitant]
     Active Substance: AMILORIDE
  3. MIRALAX [Concomitant]
     Active Substance: POLYETHYLENE GLYCOL 3350
  4. FORTEO [Concomitant]
     Active Substance: TERIPARATIDE
  5. SENNOKOT-S [Concomitant]
  6. CALCITRIOL. [Concomitant]
     Active Substance: CALCITRIOL
  7. CALCIUM [Concomitant]
     Active Substance: CALCIUM
  8. ERGOCALCIFEROL. [Concomitant]
     Active Substance: ERGOCALCIFEROL
  9. CLONIDINE. [Concomitant]
     Active Substance: CLONIDINE
  10. CITRATE MAG OX [Concomitant]

REACTIONS (2)
  - Recalled product [None]
  - Quality of life decreased [None]

NARRATIVE: CASE EVENT DATE: 20190907
